FAERS Safety Report 9644880 (Version 2)
Quarter: 2013Q4

REPORT INFORMATION
  Report Type: Report from Study
  Country: NL (occurrence: NL)
  Receive Date: 20131025
  Receipt Date: 20131114
  Transmission Date: 20140711
  Serious: Yes (Other)
  Sender: FDA-Public Use
  Company Number: PHHY2013NL120338

PATIENT
  Sex: Male

DRUGS (11)
  1. ZOMETA [Suspect]
     Indication: OSTEOPENIA
     Dosage: 4 MG PER 100 ML ONCE PER 4 WEEKS
     Route: 042
  2. ZOMETA [Suspect]
     Dosage: 4 MG PER 100 ML ONCE PER 4 WEEKS
     Route: 042
     Dates: start: 20121025
  3. ZOMETA [Suspect]
     Dosage: 4 MG PER 100 ML ONCE PER 4 WEEKS
     Route: 042
     Dates: start: 20130927
  4. ZOMETA [Suspect]
     Dosage: 4 MG PER 100 ML ONCE PER 4 WEEKS
     Route: 042
     Dates: start: 20131023
  5. ZOMETA [Suspect]
     Dosage: 4 MG, ONCE PER 4 WEEKS
     Route: 042
     Dates: start: 20131024
  6. OMEPRAZOLE [Concomitant]
     Dosage: 20 MG, QD
  7. LACTULOSE [Concomitant]
     Dosage: UNK UKN, UNK
  8. CALCICHEW [Concomitant]
     Dosage: 500/400 UNK, QD
  9. SIMVASTATIN [Concomitant]
     Dosage: 20 MG, QD
  10. LYRICA [Concomitant]
     Dosage: 150 MG, 2X
  11. AMITRIPTYLINE [Concomitant]
     Dosage: 25 MG, BID

REACTIONS (2)
  - Fall [Recovered/Resolved with Sequelae]
  - Hip fracture [Recovered/Resolved]
